FAERS Safety Report 9152613 (Version 1)
Quarter: 2013Q1

REPORT INFORMATION
  Report Type: Spontaneous
  Country: TR (occurrence: TR)
  Receive Date: 20130308
  Receipt Date: 20130308
  Transmission Date: 20140127
  Serious: Yes (Other)
  Sender: FDA-Public Use
  Company Number: TR-ASTRAZENECA-2013SE13586

PATIENT
  Age: 23 Year
  Sex: Female

DRUGS (3)
  1. BUPIVACAINE [Suspect]
     Indication: LOCAL ANAESTHESIA
     Route: 008
  2. LIDOCAINE [Suspect]
     Indication: LOCAL ANAESTHESIA
     Route: 008
  3. PRILOCAINE [Suspect]
     Indication: LOCAL ANAESTHESIA
     Route: 061

REACTIONS (3)
  - Drug hypersensitivity [Recovered/Resolved]
  - Urticaria [Recovered/Resolved]
  - Angioedema [Recovered/Resolved]
